FAERS Safety Report 13043042 (Version 2)
Quarter: 2017Q1

REPORT INFORMATION
  Report Type: Report from Study
  Country: US (occurrence: US)
  Receive Date: 20161219
  Receipt Date: 20170207
  Transmission Date: 20170428
  Serious: Yes (Hospitalization)
  Sender: FDA-Public Use
  Company Number: US-PFIZER INC-2016554913

PATIENT
  Age: 64 Year
  Sex: Female
  Weight: 70.9 kg

DRUGS (6)
  1. DOCUSATE SODIUM. [Concomitant]
     Active Substance: DOCUSATE SODIUM
     Indication: CONSTIPATION
     Dosage: 100 MG, AS NEEDED
     Route: 048
     Dates: start: 20160906
  2. FUROSEMIDE. [Concomitant]
     Active Substance: FUROSEMIDE
     Indication: DIURETIC THERAPY
     Dosage: 40 MG, ONCE
     Route: 042
     Dates: start: 20161128
  3. PF-04136309 [Suspect]
     Active Substance: INVESTIGATIONAL PRODUCT
     Indication: ADENOCARCINOMA PANCREAS
     Dosage: 500 MG, TWICE DAILY CONTINUOUS
     Route: 048
     Dates: start: 20160906, end: 20161116
  4. GEMZAR [Suspect]
     Active Substance: GEMCITABINE HYDROCHLORIDE
     Indication: ADENOCARCINOMA PANCREAS
     Dosage: 1600 MG, DAY 1, 8 AND 15 (28 DAY CYCLE (3/1 SCHEDULE))
     Route: 042
     Dates: start: 20160906, end: 20161116
  5. ABRAXANE [Suspect]
     Active Substance: PACLITAXEL
     Indication: ADENOCARCINOMA PANCREAS
     Dosage: 200 MG, CYCLIC
     Route: 042
     Dates: start: 20160906, end: 20161116
  6. ENOXAPARIN [Concomitant]
     Active Substance: ENOXAPARIN
     Indication: ANTICOAGULANT THERAPY
     Dosage: 30 MG, 2X/DAY (EVERY 12 HOURS)
     Dates: start: 20161127

REACTIONS (1)
  - Pneumonitis [Recovered/Resolved]

NARRATIVE: CASE EVENT DATE: 20161125
